FAERS Safety Report 9570248 (Version 1)
Quarter: 2013Q3

REPORT INFORMATION
  Report Type: Spontaneous
  Country: US (occurrence: US)
  Receive Date: 20130930
  Receipt Date: 20130930
  Transmission Date: 20140515
  Serious: No
  Sender: FDA-Public Use
  Company Number: US-AMGEN-USASP2013064964

PATIENT
  Age: 75 Year
  Sex: Female

DRUGS (2)
  1. ENBREL [Suspect]
     Indication: RHEUMATOID ARTHRITIS
     Dosage: 25 MG, 2 TIMES/WK
     Route: 065
     Dates: start: 20030130
  2. METHOTREXATE [Concomitant]
     Dosage: 2.5 MG, QWK (3 TABLETS A WEEK PILLS)
     Dates: start: 1991

REACTIONS (2)
  - Arthralgia [Not Recovered/Not Resolved]
  - Chondropathy [Not Recovered/Not Resolved]
